FAERS Safety Report 7227746-4 (Version None)
Quarter: 2011Q1

REPORT INFORMATION
  Report Type: 
  Country: None (occurrence: None)
  Receive Date: 20110111
  Receipt Date: 20110111
  Transmission Date: 20110831
  Serious: Yes (Hospitalization)
  Sender: FDA-Public Use
  Company Number: None

PATIENT
  Age: 83 Year
  Sex: Male
  Weight: 116 kg

DRUGS (1)
  1. PRADAXA 150MG BOEHRINGER INGELHEIM [Suspect]
     Indication: ATRIAL FIBRILLATION

REACTIONS (3)
  - ASTHENIA [None]
  - HAEMATURIA [None]
  - HAEMATOCRIT DECREASED [None]
